FAERS Safety Report 7755619-7 (Version None)
Quarter: 2011Q3

REPORT INFORMATION
  Report Type: 
  Country: None (occurrence: None)
  Receive Date: 20110915
  Receipt Date: 20110915
  Transmission Date: 20111222
  Serious: Yes (Disabling, Other)
  Sender: FDA-Public Use
  Company Number: None

PATIENT
  Sex: Female

DRUGS (1)
  1. ALLOPURINOL 100MG TAB [Suspect]
     Indication: GOUT
     Dosage: 1/2 TABLET ONCE A DAY SUBS FOR ZYZOPRIM
     Dates: start: 20110603, end: 20110608

REACTIONS (3)
  - DRUG HYPERSENSITIVITY [None]
  - ABASIA [None]
  - RENAL DISORDER [None]
